FAERS Safety Report 20184127 (Version 2)
Quarter: 2022Q1

REPORT INFORMATION
  Report Type: Report from Study
  Country: DE (occurrence: DE)
  Receive Date: 20211214
  Receipt Date: 20220303
  Transmission Date: 20220423
  Serious: Yes (Hospitalization)
  Sender: FDA-Public Use
  Company Number: DE-BIOGEN-2021BI01060127

PATIENT
  Age: 58 Year
  Sex: Female
  Weight: 89 kg

DRUGS (9)
  1. TECFIDERA [Suspect]
     Active Substance: DIMETHYL FUMARATE
     Indication: Multiple sclerosis
     Route: 048
     Dates: start: 20140214, end: 202109
  2. PANCRELIPASE [Concomitant]
     Active Substance: PANCRELIPASE
     Indication: Product used for unknown indication
     Dosage: 40,000, HARD CAPSULES WITH ENTERIC-COATED PELLETS
     Route: 065
  3. PANCRELIPASE [Concomitant]
     Active Substance: PANCRELIPASE
     Dosage: 10,000, HARD CAPSULES WITH ENTERIC-COATED PELLETS 1 PIECE WITH SNACK
     Route: 065
  4. L-thyroxine Henning [Concomitant]
     Indication: Product used for unknown indication
     Route: 065
  5. LOSARTAN STADA [Concomitant]
     Indication: Product used for unknown indication
     Route: 065
  6. PYRIDOXINE HYDROCHLORIDE\THIAMINE HYDROCHLORIDE [Concomitant]
     Active Substance: PYRIDOXINE HYDROCHLORIDE\THIAMINE HYDROCHLORIDE
     Indication: Product used for unknown indication
     Dosage: 100 MG/100 MG
     Route: 065
  7. PROGESTERONE [Concomitant]
     Active Substance: PROGESTERONE
     Indication: Product used for unknown indication
     Route: 065
  8. PROGESTERONE [Concomitant]
     Active Substance: PROGESTERONE
     Route: 065
  9. METAMIZOLE SODIUM [Concomitant]
     Active Substance: METAMIZOLE SODIUM
     Indication: Product used for unknown indication
     Dosage: AS NEEDED, MAX 8 TIMES/ DAY
     Route: 065

REACTIONS (10)
  - Intraductal papillary mucinous neoplasm [Not Recovered/Not Resolved]
  - Hypokalaemia [Unknown]
  - Hypertension [Unknown]
  - Hypothyroidism [Unknown]
  - Vitamin B1 deficiency [Unknown]
  - Vitamin B6 deficiency [Unknown]
  - Menopausal symptoms [Unknown]
  - Uterine prolapse [Recovered/Resolved]
  - Gastritis [Unknown]
  - Lymphopenia [Not Recovered/Not Resolved]

NARRATIVE: CASE EVENT DATE: 20210901
